FAERS Safety Report 5754374-X (Version None)
Quarter: 2008Q2

REPORT INFORMATION
  Report Type: 
  Country: None (occurrence: None)
  Receive Date: 20080530
  Receipt Date: 20080522
  Transmission Date: 20081010
  Serious: Yes (Other)
  Sender: FDA-Public Use
  Company Number: ES-ABBOTT-08P-144-0445696-00

PATIENT
  Age: 46 Year
  Sex: Female
  Weight: 63 kg

DRUGS (17)
  1. REMIFENTANIL [Suspect]
     Indication: MAINTENANCE OF ANAESTHESIA
     Dosage: CONTINUOUS PERFUSION 0.3-0.9 MCG/KG/MIN
  2. REMIFENTANIL [Suspect]
     Dosage: 1.05 MCG/KG/MIN
  3. SEVOFLURANE [Suspect]
     Indication: MAINTENANCE OF ANAESTHESIA
  4. FENTANYL-100 [Suspect]
     Indication: INDUCTION OF ANAESTHESIA
  5. FENTANYL-100 [Suspect]
     Indication: EPIDURAL ANAESTHESIA
     Dosage: 4 MCG/ML AT 4 ML/HR AND 3ML BOLUS
  6. MIDAZOLAM HCL [Suspect]
     Indication: INDUCTION OF ANAESTHESIA
  7. MIDAZOLAM HCL [Suspect]
     Indication: ANXIETY
  8. PROPOFOL [Suspect]
     Indication: INDUCTION OF ANAESTHESIA
  9. CISATRACURIUM [Suspect]
     Indication: INDUCTION OF ANAESTHESIA
  10. MORPHINE CHLORIDE [Concomitant]
     Indication: POSTOPERATIVE ANALGESIA
     Dosage: WAS REACHED
  11. MORPHINE CHLORIDE [Concomitant]
     Indication: PAIN MANAGEMENT
     Dosage: 5 MG IV BOLUSES UNTIL 45 MG
  12. OXYGEN [Concomitant]
     Indication: MAINTENANCE OF ANAESTHESIA
     Dosage: 46/60 %
  13. ACETAMINOPHEN [Concomitant]
     Indication: POSTOPERATIVE ANALGESIA
  14. ACETAMINOPHEN [Concomitant]
     Indication: PAIN MANAGEMENT
  15. KETOROLAC TROMETHAMINE [Concomitant]
     Indication: PAIN MANAGEMENT
     Route: 042
  16. METAMIZOLE [Concomitant]
     Indication: PAIN MANAGEMENT
     Route: 042
  17. ROPIVACAINE [Concomitant]
     Indication: EPIDURAL ANAESTHESIA
     Route: 008

REACTIONS (2)
  - DRUG TOLERANCE [None]
  - HYPERAESTHESIA [None]
